FAERS Safety Report 17826196 (Version 2)
Quarter: 2020Q2

REPORT INFORMATION
  Report Type: Spontaneous
  Country: JP (occurrence: JP)
  Receive Date: 20200527
  Receipt Date: 20200531
  Transmission Date: 20200714
  Serious: Yes (Hospitalization)
  Sender: FDA-Public Use
  Company Number: JP-CELLTRION INC.-2020JP022599

PATIENT

DRUGS (4)
  1. OXALIPLATIN I.V. INFUSION SOLUTION 100MG[NK] [Concomitant]
     Indication: PRODUCT USED FOR UNKNOWN INDICATION
  2. TEGAFUR GIMERACIL AND OTERACIL POTASSIUM [Concomitant]
     Indication: PRODUCT USED FOR UNKNOWN INDICATION
  3. TRASTUZUMAB BS FOR I.V. INFUSION [NK] [Suspect]
     Active Substance: TRASTUZUMAB
     Indication: GASTRIC CANCER
     Dosage: UNK
     Route: 065
  4. TRASTUZUMAB BS FOR I.V. INFUSION [NK] [Suspect]
     Active Substance: TRASTUZUMAB
     Dosage: 2ND DOSE
     Route: 065

REACTIONS (1)
  - Right ventricular failure [Recovering/Resolving]

NARRATIVE: CASE EVENT DATE: 20200525
